FAERS Safety Report 16472288 (Version 1)
Quarter: 2019Q2

REPORT INFORMATION
  Report Type: Spontaneous
  Country: US (occurrence: US)
  Receive Date: 20190625
  Receipt Date: 20190625
  Transmission Date: 20190711
  Serious: Yes (Hospitalization)
  Sender: FDA-Public Use
  Company Number: US-ALVOGEN-2019-ALVOGEN-100226

PATIENT
  Sex: Male

DRUGS (6)
  1. AMFETAMINE [Concomitant]
     Active Substance: AMPHETAMINE
     Indication: PSYCHOTIC DISORDER
  2. ARIPIPRAZOLE. [Concomitant]
     Active Substance: ARIPIPRAZOLE
     Indication: PSYCHOTIC DISORDER
  3. IMIPRAMINE [Interacting]
     Active Substance: IMIPRAMINE
     Indication: BLADDER SPASM
  4. KETAMINE [Concomitant]
     Active Substance: KETAMINE
     Indication: DEPRESSION
     Dosage: EVERY 6 WEEKS
     Route: 042
     Dates: start: 201604
  5. DISULFIRAM. [Suspect]
     Active Substance: DISULFIRAM
     Indication: LYME DISEASE
     Route: 048
     Dates: start: 201801
  6. DULOXETINE. [Concomitant]
     Active Substance: DULOXETINE
     Indication: PSYCHOTIC DISORDER

REACTIONS (7)
  - Syncope [Recovered/Resolved]
  - Drug interaction [Unknown]
  - Drug level above therapeutic [Unknown]
  - Off label use [Unknown]
  - Concussion [Recovered/Resolved]
  - Fatigue [Recovered/Resolved]
  - Thinking abnormal [Recovered/Resolved]

NARRATIVE: CASE EVENT DATE: 201802
